FAERS Safety Report 17364485 (Version 1)
Quarter: 2020Q1

REPORT INFORMATION
  Report Type: Spontaneous
  Country: US (occurrence: US)
  Receive Date: 20200204
  Receipt Date: 20200204
  Transmission Date: 20200409
  Serious: Yes (Death)
  Sender: FDA-Public Use
  Company Number: US-ALVOGEN-2020-ALVOGEN-102586

PATIENT
  Age: 57 Year
  Sex: Male

DRUGS (3)
  1. METAMFETAMINE HYDROCHLORIDE [Suspect]
     Active Substance: METHAMPHETAMINE HYDROCHLORIDE
     Indication: DRUG ABUSE
     Dosage: ROUTE: INGST, UNK
  2. NAPROXEN. [Suspect]
     Active Substance: NAPROXEN
     Indication: DRUG ABUSE
     Dosage: ROUTE: INGST AND UNKNOWN
  3. ALCOHOL. [Suspect]
     Active Substance: ALCOHOL
     Indication: DRUG ABUSE
     Dosage: ROUTE: INGST AND UNKNOWN

REACTIONS (1)
  - Drug abuse [Fatal]
